FAERS Safety Report 5839068-4 (Version None)
Quarter: 2008Q3

REPORT INFORMATION
  Report Type: 
  Country: None (occurrence: None)
  Receive Date: 20080808
  Receipt Date: 20080729
  Transmission Date: 20090109
  Serious: Yes (Hospitalization)
  Sender: FDA-Public Use
  Company Number: SE-ABBOTT-08P-150-0468511-00

PATIENT
  Age: 63 Year
  Sex: Male

DRUGS (4)
  1. ZEMPLAR [Suspect]
     Indication: HYPERPARATHYROIDISM
     Dosage: 5UG/ML: 2ML WEEKLY
     Route: 050
     Dates: start: 20080214, end: 20080707
  2. ZEMPLAR [Suspect]
     Dates: start: 20080805
  3. CLOPIDOGREL [Concomitant]
     Indication: DRUG USE FOR UNKNOWN INDICATION
  4. NOVA NORM TABLETS [Concomitant]
     Indication: BLOOD GLUCOSE INCREASED

REACTIONS (5)
  - ABDOMINAL PAIN LOWER [None]
  - CONDITION AGGRAVATED [None]
  - DYSURIA [None]
  - INFECTION [None]
  - URINARY TRACT DISORDER [None]
